FAERS Safety Report 15053050 (Version 1)
Quarter: 2018Q2

REPORT INFORMATION
  Report Type: Spontaneous
  Country: DE (occurrence: DE)
  Receive Date: 20180622
  Receipt Date: 20180622
  Transmission Date: 20180711
  Serious: Yes (Hospitalization)
  Sender: FDA-Public Use
  Company Number: DE-TEVA-2018-DE-910943

PATIENT
  Age: 59 Year
  Sex: Male

DRUGS (9)
  1. TEVETEN [Concomitant]
     Active Substance: EPROSARTAN MESYLATE
     Dosage: 600|12.5 MG, 1X1
  2. ENBREL [Suspect]
     Active Substance: ETANERCEPT
     Dosage: NK MG, 1 X /WOCHE, AMPULLEN
     Route: 058
  3. DICLOFENAC [Suspect]
     Active Substance: DICLOFENAC
     Dosage: 1-0-1-0
     Route: 065
  4. METHOCARBAMOL. [Concomitant]
     Active Substance: METHOCARBAMOL
     Dosage: NK MG, 1-0-1-0
  5. IBUPROFEN. [Suspect]
     Active Substance: IBUPROFEN
     Dosage: 1-0-1-0
     Route: 065
  6. METOPROLOL. [Concomitant]
     Active Substance: METOPROLOL
     Dosage: 95 MG, 1X1
  7. METAMIZOLE [Suspect]
     Active Substance: METAMIZOLE
     Dosage: NK MG, NK
     Route: 065
  8. TRAMADOL. [Suspect]
     Active Substance: TRAMADOL
     Dosage: 1-0-1-0
     Route: 065
  9. ASS 100 [Concomitant]
     Active Substance: ASPIRIN
     Dosage: 100 MG, 1X1

REACTIONS (3)
  - Drug prescribing error [Unknown]
  - Abdominal pain [Unknown]
  - Liver function test abnormal [Unknown]
